FAERS Safety Report 11353853 (Version 1)
Quarter: 2015Q3

REPORT INFORMATION
  Report Type: Spontaneous
  Country: US (occurrence: US)
  Receive Date: 20150807
  Receipt Date: 20150807
  Transmission Date: 20151125
  Serious: No
  Sender: FDA-Public Use
  Company Number: US-JNJFOC-20150506413

PATIENT
  Sex: Female
  Weight: 127.01 kg

DRUGS (8)
  1. SUDAFED [Suspect]
     Active Substance: PSEUDOEPHEDRINE HYDROCHLORIDE
     Indication: PRODUCT USED FOR UNKNOWN INDICATION
     Route: 065
  2. ZOFRAN [Concomitant]
     Active Substance: ONDANSETRON HYDROCHLORIDE
     Indication: DIVERTICULITIS
     Route: 042
     Dates: start: 20150317, end: 20150317
  3. CIPRO [Concomitant]
     Active Substance: CIPROFLOXACIN HYDROCHLORIDE
     Indication: DIVERTICULITIS
     Route: 048
     Dates: start: 20150317, end: 20150328
  4. KETOROLAC [Concomitant]
     Active Substance: KETOROLAC\KETOROLAC TROMETHAMINE
     Indication: DIVERTICULITIS
     Route: 042
     Dates: start: 20150317, end: 20150317
  5. LEVAQUIN [Concomitant]
     Active Substance: LEVOFLOXACIN
     Indication: DIVERTICULITIS
     Route: 042
     Dates: start: 20150317, end: 20150317
  6. NORMAL SALINE [Concomitant]
     Active Substance: SODIUM CHLORIDE
     Indication: DIVERTICULITIS
     Route: 042
     Dates: start: 20150317, end: 20150317
  7. FLAGYL [Concomitant]
     Active Substance: METRONIDAZOLE\METRONIDAZOLE HYDROCHLORIDE
     Indication: DIVERTICULITIS
     Route: 048
     Dates: start: 20150317, end: 20150328
  8. NAPROXEN. [Concomitant]
     Active Substance: NAPROXEN
     Indication: DIVERTICULITIS
     Dosage: PRN
     Route: 048
     Dates: start: 20150318

REACTIONS (2)
  - Palpitations [Unknown]
  - Multiple allergies [Unknown]

NARRATIVE: CASE EVENT DATE: 1989
